FAERS Safety Report 23972652 (Version 3)
Quarter: 2024Q2

REPORT INFORMATION
  Report Type: Spontaneous
  Country: AR (occurrence: AR)
  Receive Date: 20240613
  Receipt Date: 20240620
  Transmission Date: 20240716
  Serious: Yes (Life-Threatening, Other)
  Sender: FDA-Public Use
  Company Number: AR-MYLANLABS-2024M1054069

PATIENT
  Age: 17 Year
  Sex: Male

DRUGS (1)
  1. CLOZAPINE [Suspect]
     Active Substance: CLOZAPINE
     Indication: Product used for unknown indication
     Dosage: UNK (APPROXIMATE DATE: 12-JUN-2024)
     Route: 065
     Dates: end: 20240613

REACTIONS (7)
  - Agranulocytosis [Recovered/Resolved]
  - Leukopenia [Recovered/Resolved]
  - Neutropenia [Unknown]
  - Red blood cell count increased [Unknown]
  - Mean cell volume decreased [Unknown]
  - Mean cell haemoglobin decreased [Unknown]
  - Off label use [Unknown]

NARRATIVE: CASE EVENT DATE: 20240601
